FAERS Safety Report 24557279 (Version 1)
Quarter: 2024Q4

REPORT INFORMATION
  Report Type: Spontaneous
  Country: US (occurrence: US)
  Receive Date: 20241028
  Receipt Date: 20241028
  Transmission Date: 20250115
  Serious: No
  Sender: Harrow Health
  Company Number: US-IMP-2024000871

PATIENT
  Age: 82 Year
  Sex: Male

DRUGS (1)
  1. VEVYE [Suspect]
     Active Substance: CYCLOSPORINE
     Indication: Product used for unknown indication
     Route: 047
     Dates: start: 20241017

REACTIONS (3)
  - Instillation site irritation [Recovered/Resolved]
  - Ocular discomfort [Unknown]
  - Dysstasia [Unknown]

NARRATIVE: CASE EVENT DATE: 20241017
